FAERS Safety Report 5254956-8 (Version None)
Quarter: 2007Q1

REPORT INFORMATION
  Report Type: 
  Country: None (occurrence: None)
  Receive Date: 20070228
  Receipt Date: 20070215
  Transmission Date: 20070707
  Serious: Yes (Hospitalization)
  Sender: FDA-Public Use
  Company Number: WAES 0702USA02899

PATIENT
  Age: 68 Year
  Sex: Female

DRUGS (5)
  1. CLINORIL [Suspect]
     Indication: ARTHRITIS
     Dosage: 200 MG/DAILY/PO
     Route: 048
     Dates: start: 20070101, end: 20070126
  2. CLOPIDOGREL BISULFATE UNK [Suspect]
     Dates: start: 20060304, end: 20070124
  3. PLACEBO (UNSPECIFIED) UNK [Suspect]
     Dosage: SEE IMAGE
     Dates: start: 20060304, end: 20070124
  4. PLACEBO (UNSPECIFIED) UNK [Suspect]
     Dosage: SEE IMAGE
     Dates: start: 20060304, end: 20070124
  5. ENBREL [Concomitant]

REACTIONS (2)
  - COLITIS ISCHAEMIC [None]
  - RECTAL HAEMORRHAGE [None]
